FAERS Safety Report 18998526 (Version 1)
Quarter: 2021Q1

REPORT INFORMATION
  Report Type: Report from Study
  Country: US (occurrence: US)
  Receive Date: 20210312
  Receipt Date: 20210312
  Transmission Date: 20210420
  Serious: No
  Sender: FDA-Public Use
  Company Number: US-ORGANON-2101USA003632

PATIENT
  Age: 32 Year
  Sex: Female
  Weight: 144.22 kg

DRUGS (1)
  1. IMPLANON [Suspect]
     Active Substance: ETONOGESTREL
     Dosage: DOSE /FREQUENCY: ONCE, IMPLANTED ROD; STRENGTH: 68 MG; INSERTION LOCATION: RIGHT ARM
     Route: 059
     Dates: start: 20180523

REACTIONS (2)
  - No adverse event [Unknown]
  - Device breakage [Not Recovered/Not Resolved]
